FAERS Safety Report 16507947 (Version 1)
Quarter: 2019Q3

REPORT INFORMATION
  Report Type: Spontaneous
  Country: DK (occurrence: DK)
  Receive Date: 20190701
  Receipt Date: 20190701
  Transmission Date: 20191004
  Serious: Yes (Hospitalization)
  Sender: FDA-Public Use
  Company Number: DK-MYLANLABS-2019M1059304

PATIENT
  Age: 94 Year
  Sex: Female

DRUGS (5)
  1. LEVOTHYROXINE SODIUM. [Concomitant]
     Active Substance: LEVOTHYROXINE SODIUM
     Indication: HYPOMETABOLISM
     Dosage: 200 MICROGRAM, QW, STYRKE: 50 MIKROGRAM.
     Route: 048
     Dates: start: 20131016
  2. GLYCERYLNITRAT [Concomitant]
     Indication: CHEST PAIN
     Dosage: 1 DOSAGE FORM, STYRKE: 0,4 MIKROGRAM/DOSIS.
     Route: 048
     Dates: start: 20181201
  3. SPIRONOLACTONE. [Suspect]
     Active Substance: SPIRONOLACTONE
     Indication: DIURETIC THERAPY
     Dosage: 25 MILLIGRAM, QD,STYRKE: 25 MG.
     Route: 048
     Dates: start: 20170118, end: 20181228
  4. CALCIUM + VITAMIN D                /00944201/ [Concomitant]
     Active Substance: CALCIUM CARBONATE\CHOLECALCIFEROL
     Indication: PRODUCT USED FOR UNKNOWN INDICATION
     Dosage: STYRKE: UKENDT.
     Route: 048
     Dates: start: 20140220, end: 20181227
  5. OMEPRAZOLE. [Concomitant]
     Active Substance: OMEPRAZOLE
     Indication: GASTROOESOPHAGEAL REFLUX DISEASE
     Dosage: 20 MILLIGRAM, STYRKE: 20 MG. DOSIS: 1 TABLET PN., H?JST 2 GANGE DAGLIGT.
     Route: 048
     Dates: start: 20161222, end: 20181227

REACTIONS (4)
  - Hyponatraemia [Not Recovered/Not Resolved]
  - Hyperkalaemia [Not Recovered/Not Resolved]
  - Fall [Unknown]
  - Upper limb fracture [Unknown]

NARRATIVE: CASE EVENT DATE: 2018
